FAERS Safety Report 10490657 (Version 2)
Quarter: 2014Q4

REPORT INFORMATION
  Report Type: Spontaneous
  Country: US (occurrence: US)
  Receive Date: 20141002
  Receipt Date: 20141002
  Transmission Date: 20150528
  Serious: No
  Sender: FDA-Public Use
  Company Number: US-GLAXOSMITHKLINE-A1035572A

PATIENT
  Age: 65 Year
  Sex: Female

DRUGS (2)
  1. ADVAIR HFA [Suspect]
     Active Substance: FLUTICASONE PROPIONATE\SALMETEROL XINAFOATE
     Indication: DYSPNOEA
     Dosage: 1PUFF TWICE PER DAY
     Route: 055
     Dates: end: 201307
  2. VITAMIN [Concomitant]
     Active Substance: VITAMINS

REACTIONS (4)
  - Overdose [Unknown]
  - Drug ineffective [Unknown]
  - Product quality issue [Unknown]
  - Dyspnoea [Unknown]
